FAERS Safety Report 25442320 (Version 1)
Quarter: 2025Q2

REPORT INFORMATION
  Report Type: Report from Study
  Country: PT (occurrence: PT)
  Receive Date: 20250616
  Receipt Date: 20250616
  Transmission Date: 20250716
  Serious: Yes (Other)
  Sender: ABBVIE
  Company Number: PT-ABBVIE-6327164

PATIENT
  Age: 58 Year
  Sex: Male

DRUGS (3)
  1. FOSCARBIDOPA\FOSLEVODOPA [Suspect]
     Active Substance: FOSCARBIDOPA\FOSLEVODOPA
     Indication: Parkinson^s disease
     Route: 058
     Dates: start: 2025
  2. FOSCARBIDOPA\FOSLEVODOPA [Suspect]
     Active Substance: FOSCARBIDOPA\FOSLEVODOPA
     Route: 058
     Dates: start: 20250313
  3. XADAGO [Concomitant]
     Active Substance: SAFINAMIDE MESYLATE
     Indication: Product used for unknown indication
     Dosage: FORM STRENGTH: 100 MILLIGRAM, START DATE TEXT: BEFORE DUODOPA SUBCUTANEOUS,

REACTIONS (1)
  - Glaucoma [Not Recovered/Not Resolved]

NARRATIVE: CASE EVENT DATE: 20250601
